FAERS Safety Report 9026658 (Version 1)
Quarter: 2013Q1

REPORT INFORMATION
  Report Type: Spontaneous
  Country: US (occurrence: None)
  Receive Date: 20130114
  Receipt Date: 20130114
  Transmission Date: 20140127
  Serious: Yes (Other)
  Sender: FDA-Public Use
  Company Number: None

PATIENT
  Sex: Female
  Weight: 90.72 kg

DRUGS (1)
  1. SULFAMETHOXAZOLE/TRIMETHOPRIM [Suspect]
     Dosage: 1 TABLET
     Dates: start: 201205

REACTIONS (4)
  - Drug hypersensitivity [None]
  - Throat tightness [None]
  - Throat irritation [None]
  - Pharyngeal oedema [None]
